FAERS Safety Report 8243670 (Version 6)
Quarter: 2012Q4

REPORT INFORMATION
  Report Type: 
  Country: PL (occurrence: PL)
  Receive Date: 20111114
  Receipt Date: 20121102
  Transmission Date: 20130627
  Serious: Yes (Hospitalization)
  Sender: FDA-Public Use
  Company Number: PL-PFIZER INC-2011237193

PATIENT
  Age: 58 Year
  Sex: Male
  Weight: 94 kg

DRUGS (4)
  1. TEMSIROLIMUS [Suspect]
     Indication: MANTLE CELL LYMPHOMA
     Dosage: 75 mg, once weekly
     Route: 042
     Dates: start: 20110905, end: 20111010
  2. METOPROLOL [Concomitant]
     Indication: HYPERTENSION ARTERIAL
     Dosage: UNK
     Dates: start: 1995, end: 20110919
  3. SIMVASTATIN [Concomitant]
     Indication: HYPERCHOLESTEROLEMIA
     Dosage: UNK
  4. TAMIFLU [Concomitant]
     Indication: UPPER RESPIRATORY TRACT INFECTION
     Dosage: UNK
     Dates: start: 20110911, end: 20110922

REACTIONS (2)
  - Acidosis [Recovered/Resolved with Sequelae]
  - Hyperthyroidism [Not Recovered/Not Resolved]
